FAERS Safety Report 23895263 (Version 1)
Quarter: 2024Q2

REPORT INFORMATION
  Report Type: Spontaneous
  Country: RU (occurrence: None)
  Receive Date: 20240524
  Receipt Date: 20240524
  Transmission Date: 20240715
  Serious: Yes (Other)
  Sender: FDA-Public Use
  Company Number: RU-ROCHE-3567050

PATIENT
  Sex: Female

DRUGS (2)
  1. TRASTUZUMAB [Suspect]
     Active Substance: TRASTUZUMAB
     Indication: Breast cancer
     Dosage: 21 DAYS
     Route: 065
  2. ADO-TRASTUZUMAB EMTANSINE [Suspect]
     Active Substance: ADO-TRASTUZUMAB EMTANSINE
     Indication: Breast cancer
     Dosage: 2ND LINE OF BC TREATMENT SINCE MAR/2022. 21-DAY CYCLE
     Route: 041

REACTIONS (5)
  - Breast cancer metastatic [Unknown]
  - Respiratory distress [Unknown]
  - General physical health deterioration [Unknown]
  - Rib fracture [Unknown]
  - Osteosclerosis [Unknown]
